FAERS Safety Report 9646224 (Version 1)
Quarter: 2013Q4

REPORT INFORMATION
  Report Type: Report from Study
  Country: PR (occurrence: PR)
  Receive Date: 20131025
  Receipt Date: 20131025
  Transmission Date: 20140711
  Serious: Yes (Hospitalization, Other)
  Sender: FDA-Public Use
  Company Number: PR-ABBVIE-13P-131-1160372-00

PATIENT
  Age: 35 Year
  Sex: Male
  Weight: 58.11 kg

DRUGS (2)
  1. HUMIRA [Suspect]
     Indication: PRODUCT USED FOR UNKNOWN INDICATION
     Route: 058
     Dates: start: 200502, end: 20130821
  2. HUMIRA [Suspect]
     Route: 058
     Dates: start: 20131015

REACTIONS (1)
  - Small intestinal stenosis [Recovered/Resolved]
